FAERS Safety Report 4852242-9 (Version None)
Quarter: 2005Q4

REPORT INFORMATION
  Report Type: 
  Country: None (occurrence: None)
  Receive Date: 20051213
  Receipt Date: 20051205
  Transmission Date: 20060501
  Serious: Yes (Hospitalization)
  Sender: FDA-Public Use
  Company Number: FR-AVENTIS-200513978FR

PATIENT
  Age: 92 Year
  Sex: Male

DRUGS (5)
  1. FLAGYL [Suspect]
     Route: 042
     Dates: start: 20051025, end: 20051109
  2. LOVENOX [Suspect]
     Route: 058
     Dates: start: 20051025, end: 20051109
  3. ROVAMYCINE [Suspect]
     Route: 042
     Dates: start: 20051025, end: 20051109
  4. ROCEPHIN [Suspect]
     Route: 042
     Dates: start: 20051025, end: 20051109
  5. PLAVIX [Concomitant]
     Dates: end: 20051109

REACTIONS (2)
  - PRURITUS [None]
  - RASH MACULO-PAPULAR [None]
